FAERS Safety Report 17720461 (Version 1)
Quarter: 2020Q2

REPORT INFORMATION
  Report Type: Spontaneous
  Country: US (occurrence: US)
  Receive Date: 20200428
  Receipt Date: 20200428
  Transmission Date: 20200714
  Serious: No
  Sender: FDA-Public Use
  Company Number: US-ROCHE-2304277

PATIENT

DRUGS (2)
  1. AVASTIN [Suspect]
     Active Substance: BEVACIZUMAB
     Indication: PRODUCT USED FOR UNKNOWN INDICATION
     Dosage: 400MG (25MG/ML) 16ML VIAL
     Route: 065
  2. AVASTIN [Suspect]
     Active Substance: BEVACIZUMAB
     Dosage: 100MG (25MG/ML) 4ML VIAL
     Route: 065

REACTIONS (1)
  - Blood pressure increased [Unknown]
